FAERS Safety Report 8186728-9 (Version None)
Quarter: 2012Q1

REPORT INFORMATION
  Report Type: 
  Country: None (occurrence: None)
  Receive Date: 20120306
  Receipt Date: 20120224
  Transmission Date: 20120608
  Serious: Yes (Other)
  Sender: FDA-Public Use
  Company Number: HU-BRISTOL-MYERS SQUIBB COMPANY-16298390

PATIENT
  Age: 68 Year
  Sex: Female
  Weight: 68 kg

DRUGS (2)
  1. IRBESARTAN [Suspect]
     Indication: HYPERTENSION
     Dosage: APROVEL 150MG-ONG.DOSAGE 2*12. APROVEL 300MG,ORAL,DOSAGE-2*12-START DT(2011-11/2011).
     Route: 048
     Dates: start: 19980101, end: 20110901
  2. LEVOTHYROXINE SODIUM [Concomitant]
     Indication: HYPOTHYROIDISM
     Dosage: FORMULATION-TABLET
     Route: 048

REACTIONS (2)
  - ARTHRALGIA [None]
  - CUTANEOUS VASCULITIS [None]
